FAERS Safety Report 5961872-2 (Version None)
Quarter: 2008Q4

REPORT INFORMATION
  Report Type: 
  Country: None (occurrence: None)
  Receive Date: 20081121
  Receipt Date: 20080725
  Transmission Date: 20090506
  Serious: Yes (Other)
  Sender: FDA-Public Use
  Company Number: US-BRISTOL-MYERS SQUIBB COMPANY-14277883

PATIENT

DRUGS (1)
  1. AVALIDE [Suspect]

REACTIONS (1)
  - RENAL FAILURE [None]
